FAERS Safety Report 8309709-0 (Version None)
Quarter: 2012Q2

REPORT INFORMATION
  Report Type: 
  Country: None (occurrence: None)
  Receive Date: 20120425
  Receipt Date: 20120416
  Transmission Date: 20120825
  Serious: Yes (Other)
  Sender: FDA-Public Use
  Company Number: US-ABBOTT-12P-163-0926003-00

PATIENT
  Sex: Male
  Weight: 88.984 kg

DRUGS (4)
  1. HUMIRA [Suspect]
     Indication: RHEUMATOID ARTHRITIS
     Dates: start: 20000101, end: 20050101
  2. METHYLPREDNISOLONE [Concomitant]
     Indication: PRODUCT USED FOR UNKNOWN INDICATION
     Route: 048
     Dates: start: 19950101
  3. HUMIRA [Suspect]
     Dates: start: 20120201
  4. METHOTREXATE [Concomitant]
     Indication: PRODUCT USED FOR UNKNOWN INDICATION
     Dates: start: 19950101

REACTIONS (5)
  - CARPAL TUNNEL SYNDROME [None]
  - PRECANCEROUS SKIN LESION [None]
  - HEART RATE IRREGULAR [None]
  - JOINT SWELLING [None]
  - MALIGNANT MELANOMA [None]
